FAERS Safety Report 8887358 (Version 2)
Quarter: 2012Q4

REPORT INFORMATION
  Report Type: Report from Study
  Country: US (occurrence: US)
  Receive Date: 20121105
  Receipt Date: 20121116
  Transmission Date: 20130627
  Serious: Yes (Hospitalization, Other)
  Sender: FDA-Public Use
  Company Number: US-ABBOTT-12P-163-0998977-00

PATIENT
  Age: 70 Year
  Sex: Female

DRUGS (16)
  1. HUMIRA [Suspect]
     Indication: CROHN^S DISEASE
  2. HUMIRA [Suspect]
     Dates: start: 201209
  3. BEANO [Concomitant]
     Indication: GASTRIC DISORDER
  4. ROSERAMIN [Concomitant]
     Indication: INSOMNIA
     Dosage: 8mg @HS
  5. SYNTHROID [Concomitant]
     Indication: HYPOTHYROIDISM
  6. RESTORIL [Concomitant]
     Indication: INSOMNIA
     Dosage: 1-2 15mg @HS
  7. NEXIUM [Concomitant]
     Indication: GASTROOESOPHAGEAL REFLUX DISEASE
  8. NEXIUM [Concomitant]
     Indication: HIATUS HERNIA
  9. BENTYL [Concomitant]
     Indication: PRODUCT USED FOR UNKNOWN INDICATION
     Dosage: takes 2 at a time
  10. CANASA [Concomitant]
     Indication: PRODUCT USED FOR UNKNOWN INDICATION
     Route: 054
  11. CANASA [Concomitant]
     Indication: PRODUCT USED FOR UNKNOWN INDICATION
     Dosage: enema QHS
  12. WELLBUTRIN [Concomitant]
     Indication: PRODUCT USED FOR UNKNOWN INDICATION
  13. CELEXA [Concomitant]
     Indication: DEPRESSION
     Dosage: 60mg at HS
  14. LYRICA [Concomitant]
     Indication: HEADACHE
  15. LYRICA [Concomitant]
     Indication: PAIN
  16. LOMOTIL [Concomitant]
     Indication: DIARRHOEA
     Dosage: 2

REACTIONS (5)
  - Large intestinal ulcer [Recovered/Resolved]
  - Haematochezia [Recovered/Resolved]
  - Rectal haemorrhage [Unknown]
  - Injection site pain [Unknown]
  - Injection site pain [Unknown]
